FAERS Safety Report 11919955 (Version 1)
Quarter: 2016Q1

REPORT INFORMATION
  Report Type: Report from Study
  Country: CA (occurrence: CA)
  Receive Date: 20160115
  Receipt Date: 20160115
  Transmission Date: 20160526
  Serious: Yes (Other)
  Sender: FDA-Public Use
  Company Number: CA-ROCHE-1691935

PATIENT
  Sex: Male

DRUGS (7)
  1. TECTA [Concomitant]
     Active Substance: PANTOPRAZOLE MAGNESIUM
  2. DIOVAN [Concomitant]
     Active Substance: VALSARTAN
  3. CARVEDILOL. [Concomitant]
     Active Substance: CARVEDILOL
  4. ESBRIET [Suspect]
     Active Substance: PIRFENIDONE
     Indication: IDIOPATHIC PULMONARY FIBROSIS
     Route: 048
     Dates: start: 20151224
  5. ESBRIET [Suspect]
     Active Substance: PIRFENIDONE
     Route: 048
     Dates: end: 20160105
  6. ALLOPURINOL. [Concomitant]
     Active Substance: ALLOPURINOL
  7. ROSUVASTATIN [Concomitant]
     Active Substance: ROSUVASTATIN

REACTIONS (4)
  - Ill-defined disorder [Unknown]
  - Vomiting [Unknown]
  - Feeding disorder [Unknown]
  - Nausea [Recovering/Resolving]
